FAERS Safety Report 8215109-4 (Version None)
Quarter: 2012Q1

REPORT INFORMATION
  Report Type: 
  Country: None (occurrence: None)
  Receive Date: 20120316
  Receipt Date: 20120306
  Transmission Date: 20120608
  Serious: Yes (Other)
  Sender: FDA-Public Use
  Company Number: US-BAYER-2012-024963

PATIENT
  Age: 67 Year
  Sex: Female

DRUGS (17)
  1. LANTUS [Concomitant]
     Indication: DIABETES MELLITUS
  2. SPIRONOLACTONE [Concomitant]
     Indication: BLOOD PRESSURE ABNORMAL
  3. FUROSEMIDE [Concomitant]
     Indication: DIURETIC THERAPY
     Dosage: 40 MG, HS
     Route: 048
  4. HYDRALAZINE HCL [Concomitant]
     Indication: BLOOD PRESSURE ABNORMAL
     Route: 048
  5. ALLOPURINOL [Concomitant]
     Indication: GOUT
  6. AMLODIPINE [Concomitant]
     Indication: CARDIAC DISORDER
  7. SIMVASTATIN [Concomitant]
     Indication: BLOOD CHOLESTEROL ABNORMAL
     Dosage: 40 MG, HS
     Route: 048
  8. DIOVAN [Concomitant]
     Indication: BLOOD PRESSURE ABNORMAL
     Route: 048
  9. ASPIRIN [Suspect]
     Indication: ATRIAL FIBRILLATION
     Dosage: 81 MG, HS
     Route: 048
  10. CARVEDILOL [Concomitant]
     Indication: CARDIAC DISORDER
  11. GABAPENTIN [Concomitant]
     Indication: NEUROPATHY PERIPHERAL
     Dosage: 100 MG, UNK
     Route: 048
  12. VITAMIN D [Concomitant]
     Indication: HYPOVITAMINOSIS
     Dosage: 50000 IU, OW
     Route: 048
  13. XARELTO [Interacting]
     Indication: ATRIAL FIBRILLATION
     Dosage: 15 MG, HS
     Route: 048
     Dates: start: 20120201
  14. LANTUS [Concomitant]
  15. GLIPIZIDE [Concomitant]
     Indication: DIABETES MELLITUS
     Dosage: 10 MG, BID
     Route: 048
  16. FERROUS SULFATE TAB [Concomitant]
     Indication: BLOOD IRON ABNORMAL
     Dosage: 325 MG, UNK
     Route: 048
  17. LEVOTHYROXINE SODIUM [Concomitant]
     Indication: THYROID THERAPY
     Dosage: 5 MG, HS
     Route: 048

REACTIONS (3)
  - KIDNEY INFECTION [None]
  - CONTUSION [None]
  - LOCAL SWELLING [None]
